FAERS Safety Report 5663225-3 (Version None)
Quarter: 2008Q1

REPORT INFORMATION
  Report Type: 
  Country: None (occurrence: None)
  Receive Date: 20080313
  Receipt Date: 20080311
  Transmission Date: 20080703
  Serious: Yes (Death)
  Sender: FDA-Public Use
  Company Number: IN-BRISTOL-MYERS SQUIBB COMPANY-14095517

PATIENT
  Age: 57 Year
  Sex: Male

DRUGS (3)
  1. BARACLUDE [Suspect]
     Route: 048
     Dates: start: 20080129, end: 20080205
  2. LAMIVUDINE [Concomitant]
  3. CHEMOTHERAPY [Concomitant]
     Indication: PROSTATE CANCER

REACTIONS (2)
  - PROSTATE CANCER [None]
  - RENAL DISORDER [None]
